FAERS Safety Report 7288847-8 (Version None)
Quarter: 2011Q1

REPORT INFORMATION
  Report Type: 
  Country: None (occurrence: None)
  Receive Date: 20110101
  Receipt Date: 20110120
  Transmission Date: 20110831
  Serious: Yes (Other)
  Sender: FDA-Public Use
  Company Number: US-004585

PATIENT
  Sex: Female

DRUGS (1)
  1. TRANEXAMIC ACID [Suspect]
     Dosage: ORAL
     Route: 048
     Dates: start: 20110101

REACTIONS (2)
  - VOMITING [None]
  - PULMONARY EMBOLISM [None]
